FAERS Safety Report 14275866 (Version 1)
Quarter: 2017Q4

REPORT INFORMATION
  Report Type: Spontaneous
  Country: SE (occurrence: SE)
  Receive Date: 20171211
  Receipt Date: 20171211
  Transmission Date: 20180321
  Serious: Yes (Hospitalization, Other)
  Sender: FDA-Public Use
  Company Number: SE-OTSUKA-DJ20084368

PATIENT

DRUGS (18)
  1. ABILIFY [Suspect]
     Active Substance: ARIPIPRAZOLE
     Indication: SCHIZOPHRENIA
     Route: 048
     Dates: start: 20070618, end: 20080211
  2. SPIRIVA [Concomitant]
     Active Substance: TIOTROPIUM BROMIDE MONOHYDRATE
     Route: 065
  3. ACETYLCYSTEINE. [Concomitant]
     Active Substance: ACETYLCYSTEINE
     Dosage: 200 MG, TID
  4. NITRAZEPAM [Concomitant]
     Active Substance: NITRAZEPAM
     Route: 065
  5. ABILIFY [Suspect]
     Active Substance: ARIPIPRAZOLE
     Indication: SCHIZOPHRENIA
     Route: 048
     Dates: start: 20080919
  6. SYMBICORT [Concomitant]
     Active Substance: BUDESONIDE\FORMOTEROL FUMARATE DIHYDRATE
     Route: 065
  7. BUDESONIDE. [Concomitant]
     Active Substance: BUDESONIDE
     Dosage: 1 DOSAGE FORM = 1 DOSE MORNING+EVENING
  8. PERPHENAZINE. [Concomitant]
     Active Substance: PERPHENAZINE
  9. FRAGMINE [Concomitant]
     Active Substance: DALTEPARIN SODIUM
     Route: 065
  10. OXASCAND [Concomitant]
     Active Substance: OXAZEPAM
     Route: 065
  11. IMPUGAN [Concomitant]
     Active Substance: FUROSEMIDE
     Route: 065
  12. FUROSEMIDE. [Concomitant]
     Active Substance: FUROSEMIDE
     Dosage: 40 MG, QD
  13. ERGENYL [Concomitant]
     Active Substance: VALPROIC ACID
     Route: 065
  14. SPIRONOLAKTONE [Concomitant]
     Route: 065
  15. AKINETON [Concomitant]
     Active Substance: BIPERIDEN HYDROCHLORIDE
     Route: 065
  16. SPIRONOLAKTON [Concomitant]
     Active Substance: SPIRONOLACTONE
     Dosage: 25 MG, QD
  17. TRILAFON [Concomitant]
     Active Substance: PERPHENAZINE
     Route: 065
  18. ACETYLCYSTEINE. [Concomitant]
     Active Substance: ACETYLCYSTEINE
     Route: 065

REACTIONS (5)
  - Thrombosis [Recovering/Resolving]
  - Skin infection [Recovering/Resolving]
  - Oedema peripheral [Recovering/Resolving]
  - Chronic obstructive pulmonary disease [Recovering/Resolving]
  - Pneumonia [Recovering/Resolving]
